FAERS Safety Report 10487594 (Version 1)
Quarter: 2014Q4

REPORT INFORMATION
  Report Type: Spontaneous
  Country: US (occurrence: US)
  Receive Date: 20141001
  Receipt Date: 20141001
  Transmission Date: 20150528
  Serious: Yes (Hospitalization)
  Sender: FDA-Public Use
  Company Number: US-ELI_LILLY_AND_COMPANY-US201409008463

PATIENT
  Age: 60 Year
  Sex: Female

DRUGS (22)
  1. ALPHA LIPOIC ACID [Concomitant]
     Active Substance: .ALPHA.-LIPOIC ACID
  2. VITAMIN D                          /00107901/ [Concomitant]
     Active Substance: ERGOCALCIFEROL
  3. AMBIEN [Concomitant]
     Active Substance: ZOLPIDEM TARTRATE
  4. HYDROCORTISONE. [Concomitant]
     Active Substance: HYDROCORTISONE
  5. MULTIVITAMIN                       /00831701/ [Concomitant]
     Active Substance: VITAMINS
  6. CALCIUM [Concomitant]
     Active Substance: CALCIUM
  7. MAGNESIUM [Concomitant]
     Active Substance: MAGNESIUM
  8. MANGANESE [Suspect]
     Active Substance: MANGANESE\MANGANESE CHLORIDE
  9. SINGULAIR [Concomitant]
     Active Substance: MONTELUKAST SODIUM
  10. CHROMIUM GTF [Concomitant]
  11. ADVAIR HFA [Concomitant]
     Active Substance: FLUTICASONE PROPIONATE\SALMETEROL XINAFOATE
  12. GEMZAR [Suspect]
     Active Substance: GEMCITABINE HYDROCHLORIDE
     Indication: OVARIAN CANCER
     Route: 065
  13. CISPLATIN. [Suspect]
     Active Substance: CISPLATIN
     Indication: PRODUCT USED FOR UNKNOWN INDICATION
     Route: 065
  14. COPPER [Concomitant]
     Active Substance: COPPER
  15. SYNTHROID [Concomitant]
     Active Substance: LEVOTHYROXINE SODIUM
  16. IPILIMUMAB [Concomitant]
     Active Substance: IPILIMUMAB
     Indication: OVARIAN CANCER
     Dosage: 595 MG, UNK
     Route: 042
     Dates: start: 20140102, end: 20140305
  17. VITAMIN C [Concomitant]
     Active Substance: ASCORBIC ACID
  18. FISH OIL [Concomitant]
     Active Substance: FISH OIL
  19. NIACIN. [Concomitant]
     Active Substance: NIACIN
  20. ZINC [Concomitant]
     Active Substance: ZINC\ZINC CHLORIDE
  21. B COMPLEX                          /06817001/ [Concomitant]
  22. PROBIOTICA [Concomitant]
     Active Substance: PROBIOTICS NOS

REACTIONS (1)
  - Thrombocytopenia [Recovering/Resolving]

NARRATIVE: CASE EVENT DATE: 20140903
